FAERS Safety Report 15665346 (Version 1)
Quarter: 2018Q4

REPORT INFORMATION
  Report Type: Spontaneous
  Country: US (occurrence: US)
  Receive Date: 20181119
  Receipt Date: 20181119
  Transmission Date: 20190205
  Serious: No
  Sender: FDA-Public Use
  Company Number: None

PATIENT
  Age: 55 Year
  Sex: Male

DRUGS (1)
  1. TOBRAMYCIN (56AMPS/28DAY) [Suspect]
     Active Substance: TOBRAMYCIN
     Indication: LUNG TRANSPLANT
     Route: 055
     Dates: start: 20181010

REACTIONS (3)
  - Weight increased [None]
  - Tinnitus [None]
  - Haemoptysis [None]

NARRATIVE: CASE EVENT DATE: 20181010
